FAERS Safety Report 19919892 (Version 1)
Quarter: 2021Q4

REPORT INFORMATION
  Report Type: Other
  Country: SA (occurrence: SA)
  Receive Date: 20211005
  Receipt Date: 20211005
  Transmission Date: 20220303
  Serious: Yes (Other)
  Sender: FDA-Public Use
  Company Number: SA-ROCHE-2923713

PATIENT

DRUGS (1)
  1. TRASTUZUMAB [Suspect]
     Active Substance: TRASTUZUMAB
     Indication: HER2 positive breast cancer
     Route: 065

REACTIONS (78)
  - Neutropenia [Unknown]
  - Cardiomyopathy [Unknown]
  - Pulmonary embolism [Unknown]
  - Cardiac failure congestive [Unknown]
  - Bradycardia [Unknown]
  - Congestive cardiomyopathy [Unknown]
  - Febrile neutropenia [Unknown]
  - Cellulitis [Unknown]
  - Cardiotoxicity [Unknown]
  - Poisoning [Unknown]
  - Ejection fraction decreased [Unknown]
  - Hepatic enzyme increased [Unknown]
  - Blood disorder [Unknown]
  - Lymphatic disorder [Unknown]
  - Lymphoedema [Unknown]
  - Gastrointestinal disorder [Unknown]
  - Stomatitis [Unknown]
  - Vomiting [Unknown]
  - Abdominal pain upper [Unknown]
  - Abdominal pain [Unknown]
  - Dysphagia [Unknown]
  - Gastritis [Unknown]
  - Loose tooth [Unknown]
  - Pyrexia [Unknown]
  - Pain [Unknown]
  - Fatigue [Unknown]
  - Cardiac disorder [Unknown]
  - Dyspnoea [Unknown]
  - Palpitations [Unknown]
  - Nervous system disorder [Unknown]
  - Neuropathy peripheral [Unknown]
  - Dizziness [Unknown]
  - Hypoaesthesia [Unknown]
  - Muscular weakness [Unknown]
  - Musculoskeletal disorder [Unknown]
  - Connective tissue disorder [Unknown]
  - Pain in extremity [Unknown]
  - Arthralgia [Unknown]
  - Back pain [Unknown]
  - Bone pain [Unknown]
  - Respiratory disorder [Unknown]
  - Ill-defined disorder [Unknown]
  - Mediastinal disorder [Unknown]
  - Cough [Unknown]
  - Pleural effusion [Unknown]
  - Pneumonitis [Unknown]
  - Infection [Unknown]
  - Abscess limb [Unknown]
  - Bronchitis [Unknown]
  - Respiratory tract infection [Unknown]
  - Injury [Unknown]
  - Skin disorder [Unknown]
  - Alopecia [Unknown]
  - Dry skin [Unknown]
  - Pigmentation disorder [Unknown]
  - Pruritus [Unknown]
  - Skin lesion [Unknown]
  - Immune system disorder [Unknown]
  - Hypersensitivity [Unknown]
  - Skin reaction [Unknown]
  - Renal disorder [Unknown]
  - Flank pain [Unknown]
  - Dysuria [Unknown]
  - Urinary tract infection [Unknown]
  - Reproductive tract disorder [Unknown]
  - Endometrial hyperplasia [Unknown]
  - Haematuria [Unknown]
  - Ear disorder [Unknown]
  - Otitis externa [Unknown]
  - Metabolic disorder [Unknown]
  - Decreased appetite [Unknown]
  - Angiopathy [Unknown]
  - Hot flush [Unknown]
  - Procedural complication [Unknown]
  - Breast disorder [Unknown]
  - Urinary tract disorder [Unknown]
  - Inner ear disorder [Unknown]
  - Malnutrition [Unknown]
